FAERS Safety Report 9889053 (Version 1)
Quarter: 2014Q1

REPORT INFORMATION
  Report Type: Spontaneous
  Country: FR (occurrence: FR)
  Receive Date: 20140211
  Receipt Date: 20140211
  Transmission Date: 20141002
  Serious: Yes (Hospitalization)
  Sender: FDA-Public Use
  Company Number: FR-UCBSA-111592

PATIENT
  Age: 78 Year
  Sex: Female

DRUGS (13)
  1. KEPPRA [Suspect]
     Indication: EPILEPSY
     Route: 048
  2. HYPERIUM [Suspect]
     Indication: HYPERTENSION
     Route: 048
  3. GARDENAL [Suspect]
     Indication: EPILEPSY
     Route: 048
  4. TOPALGIC LP [Suspect]
     Indication: PAIN
     Route: 048
  5. ACUPAN [Suspect]
     Indication: PAIN
     Route: 048
  6. LASILIX RETARD [Suspect]
     Indication: HYPERTENSION
     Route: 048
  7. LERCAN [Suspect]
     Indication: HYPERTENSION
     Route: 048
  8. EUPRESSYL [Suspect]
     Indication: HYPERTENSION
     Route: 048
  9. KARDEGIC [Concomitant]
     Dosage: 75 MG
  10. DOLIPRANE [Concomitant]
  11. FORLAX [Concomitant]
     Dosage: 4000
  12. FUMAFER [Concomitant]
  13. CALCIDOSE [Concomitant]

REACTIONS (2)
  - Fall [Not Recovered/Not Resolved]
  - Orthostatic hypotension [Not Recovered/Not Resolved]
